FAERS Safety Report 4959790-1 (Version None)
Quarter: 2006Q1

REPORT INFORMATION
  Report Type: 
  Country: None (occurrence: None)
  Receive Date: 20060331
  Receipt Date: 20060124
  Transmission Date: 20060701
  Serious: Yes (Hospitalization)
  Sender: FDA-Public Use
  Company Number: AU-BOEHRINGER INGELHEIM PHARMACEUTICALS, INC.-2006-BP-00904AU

PATIENT
  Age: 78 Year

DRUGS (1)
  1. MOBIC [Suspect]
     Route: 048

REACTIONS (1)
  - GASTROINTESTINAL EROSION [None]
